FAERS Safety Report 12744500 (Version 1)
Quarter: 2016Q3

REPORT INFORMATION
  Report Type: Spontaneous
  Country: US (occurrence: US)
  Receive Date: 20160914
  Receipt Date: 20160914
  Transmission Date: 20161109
  Serious: No
  Sender: FDA-Public Use
  Company Number: US-JAZZ-2016-US-009474

PATIENT
  Sex: Male

DRUGS (34)
  1. BENZONATATE. [Concomitant]
     Active Substance: BENZONATATE
  2. HYDROCORTISONE. [Concomitant]
     Active Substance: HYDROCORTISONE
  3. VITAMIN D [Concomitant]
     Active Substance: CHOLECALCIFEROL
  4. XYREM [Suspect]
     Active Substance: SODIUM OXYBATE
     Indication: NARCOLEPSY
     Dosage: 3 G, BID
     Route: 048
     Dates: start: 201205, end: 201206
  5. AZITHROMYCIN ANHYDROUS. [Concomitant]
     Active Substance: AZITHROMYCIN ANHYDROUS
  6. LOSARTAN POTASSIUM. [Concomitant]
     Active Substance: LOSARTAN POTASSIUM
  7. PROVIGIL [Concomitant]
     Active Substance: MODAFINIL
  8. LAMOTRIGINE. [Concomitant]
     Active Substance: LAMOTRIGINE
  9. VITAMIN B12 [Concomitant]
     Active Substance: CYANOCOBALAMIN
  10. ALLOPURINOL. [Concomitant]
     Active Substance: ALLOPURINOL
  11. BISACODYL EC [Concomitant]
     Active Substance: BISACODYL
  12. CRESTOR [Concomitant]
     Active Substance: ROSUVASTATIN CALCIUM
  13. CYANOCOBALAMIN. [Concomitant]
     Active Substance: CYANOCOBALAMIN
  14. OCEAN SALINE NASAL SPRAY [Concomitant]
     Active Substance: SODIUM CHLORIDE
  15. PRAZOSIN [Concomitant]
     Active Substance: PRAZOSIN
  16. WARFARIN SODIUM. [Concomitant]
     Active Substance: WARFARIN SODIUM
  17. ENOXAPARIN [Concomitant]
     Active Substance: ENOXAPARIN
  18. ASPIRIN BUFFERED [Concomitant]
     Active Substance: ASPIRIN
  19. GUAIFENESIN. [Concomitant]
     Active Substance: GUAIFENESIN
  20. METOPROLOL SUCCINATE ER [Concomitant]
     Active Substance: METOPROLOL SUCCINATE
  21. PLAVIX [Concomitant]
     Active Substance: CLOPIDOGREL BISULFATE
  22. TYLENOL EXTRA STRENGTH [Concomitant]
     Active Substance: ACETAMINOPHEN
  23. VITAMIN D3 [Concomitant]
     Active Substance: CHOLECALCIFEROL
  24. XYREM [Suspect]
     Active Substance: SODIUM OXYBATE
     Dosage: 4.5 G, BID
     Route: 048
     Dates: start: 201212
  25. DICLOFENAC POTASSIUM. [Concomitant]
     Active Substance: DICLOFENAC POTASSIUM
  26. METHOCARBAMOL. [Concomitant]
     Active Substance: METHOCARBAMOL
  27. RANITIDINE. [Concomitant]
     Active Substance: RANITIDINE
  28. TAMIFLU [Concomitant]
     Active Substance: OSELTAMIVIR PHOSPHATE
  29. EYE DROPS [Concomitant]
     Active Substance: TETRAHYDROZOLINE HYDROCHLORIDE
  30. XYREM [Suspect]
     Active Substance: SODIUM OXYBATE
     Dosage: 3.5 G, BID
     Route: 048
     Dates: start: 201206, end: 201212
  31. ALBUTEROL SULFATE HFA [Concomitant]
  32. ATORVASTATIN [Concomitant]
     Active Substance: ATORVASTATIN
  33. CARVEDILOL. [Concomitant]
     Active Substance: CARVEDILOL
  34. CEPASTAT [Concomitant]
     Active Substance: PHENOL

REACTIONS (2)
  - Dyspnoea [Recovered/Resolved]
  - Influenza [Recovered/Resolved]

NARRATIVE: CASE EVENT DATE: 2016
